FAERS Safety Report 9933299 (Version 1)
Quarter: 2014Q1

REPORT INFORMATION
  Report Type: Spontaneous
  Country: US (occurrence: US)
  Receive Date: 20140228
  Receipt Date: 20140228
  Transmission Date: 20141002
  Serious: No
  Sender: FDA-Public Use
  Company Number: US-MYLANLABS-2013S1004011

PATIENT
  Age: 16 Year
  Sex: Male
  Weight: 69.85 kg

DRUGS (1)
  1. AMNESTEEM CAPSULES [Suspect]
     Indication: ACNE CYSTIC
     Route: 048
     Dates: start: 20130207, end: 20130214

REACTIONS (3)
  - Anxiety [Recovered/Resolved]
  - Agitation [Recovered/Resolved]
  - Nervousness [Recovered/Resolved]
